FAERS Safety Report 7749390-2 (Version None)
Quarter: 2011Q3

REPORT INFORMATION
  Report Type: 
  Country: None (occurrence: None)
  Receive Date: 20110914
  Receipt Date: 20110914
  Transmission Date: 20111222
  Serious: Yes (Other)
  Sender: FDA-Public Use
  Company Number: BR-PFIZER INC-2011210912

PATIENT
  Age: 45 Year
  Sex: Female
  Weight: 70 kg

DRUGS (6)
  1. ALENTHUS XR [Concomitant]
     Dosage: UNK
     Dates: start: 20110201
  2. CLORANA [Concomitant]
     Dosage: 25 UNK,UNK
  3. VARENICLINE TARTRATE [Suspect]
     Dosage: 0.5 MG, 1X/DAY
     Route: 048
     Dates: start: 20110901
  4. LOSARTAN [Concomitant]
     Dosage: 50 MG, UNK
     Dates: start: 20100301
  5. VARENICLINE TARTRATE [Suspect]
     Indication: SMOKING CESSATION THERAPY
     Dosage: UNK
     Route: 048
     Dates: start: 20110905, end: 20110901
  6. CLONAZEPAM [Concomitant]
     Dosage: UNK
     Dates: start: 20100301

REACTIONS (1)
  - HEART RATE IRREGULAR [None]
